FAERS Safety Report 6283590-6 (Version None)
Quarter: 2009Q3

REPORT INFORMATION
  Report Type: 
  Country: None (occurrence: None)
  Receive Date: 20090724
  Receipt Date: 20090417
  Transmission Date: 20100115
  Serious: Yes (Hospitalization)
  Sender: FDA-Public Use
  Company Number: TR-ELI_LILLY_AND_COMPANY-TR200907004398

PATIENT
  Age: 39 Year
  Sex: Female

DRUGS (5)
  1. HUMULIN R [Suspect]
     Indication: GESTATIONAL DIABETES
     Dosage: 28 IU, DAILY (1/D)
     Route: 058
  2. HUMULIN N [Suspect]
     Indication: GESTATIONAL DIABETES
     Dosage: 9 IU, DAILY (1/D)
     Route: 058
     Dates: start: 20090301
  3. IRON IN COMBINATION WITH FOLIC ACID [Concomitant]
     Dosage: UNK, DAILY (1/D)
     Route: 048
  4. ZOFRAN [Concomitant]
     Indication: NAUSEA
     Dosage: UNK, UNK
     Route: 048
  5. INSULIN [Concomitant]

REACTIONS (2)
  - ASTHENIA [None]
  - DRUG EXPOSURE DURING PREGNANCY [None]
